FAERS Safety Report 7442609-7 (Version None)
Quarter: 2011Q2

REPORT INFORMATION
  Report Type: 
  Country: None (occurrence: None)
  Receive Date: 20110428
  Receipt Date: 20110420
  Transmission Date: 20111010
  Serious: Yes (Other)
  Sender: FDA-Public Use
  Company Number: PHHY2011BR34242

PATIENT
  Sex: Male

DRUGS (1)
  1. CAPTOTEC [Suspect]
     Indication: HYPERTENSION
     Dosage: UNK UKN, UNK
     Route: 048

REACTIONS (5)
  - DIZZINESS [None]
  - DRUG INEFFECTIVE [None]
  - CARDIAC DISORDER [None]
  - BLOOD PRESSURE INCREASED [None]
  - CEREBROVASCULAR ACCIDENT [None]
